FAERS Safety Report 12769996 (Version 1)
Quarter: 2016Q3

REPORT INFORMATION
  Report Type: Spontaneous
  Country: JP (occurrence: JP)
  Receive Date: 20160922
  Receipt Date: 20160922
  Transmission Date: 20161109
  Serious: Yes (Hospitalization)
  Sender: FDA-Public Use
  Company Number: US-ASTRAZENECA-2016SF00548

PATIENT
  Age: 72 Year
  Sex: Male

DRUGS (1)
  1. CANDESARTAN ASKA [Suspect]
     Active Substance: CANDESARTAN CILEXETIL
     Indication: HYPERTENSION
     Dosage: 4.0MG UNKNOWN
     Route: 048

REACTIONS (1)
  - Dermatitis psoriasiform [Recovering/Resolving]
